FAERS Safety Report 7894486-8 (Version None)
Quarter: 2011Q4

REPORT INFORMATION
  Report Type: 
  Country: None (occurrence: None)
  Receive Date: 20111106
  Receipt Date: 20110822
  Transmission Date: 20120403
  Serious: No
  Sender: FDA-Public Use
  Company Number: US-AMGEN-USASP2011041065

PATIENT
  Sex: Female

DRUGS (4)
  1. ENBREL [Suspect]
     Indication: RHEUMATOID ARTHRITIS
     Dosage: 50 MG, QWK
  2. METHYLPREDNISOLONE [Concomitant]
  3. METHOTREXATE [Concomitant]
  4. DEPO-MEDROL [Concomitant]

REACTIONS (1)
  - RHEUMATOID ARTHRITIS [None]
